FAERS Safety Report 11641119 (Version 1)
Quarter: 2015Q4

REPORT INFORMATION
  Report Type: Spontaneous
  Country: US (occurrence: US)
  Receive Date: 20151019
  Receipt Date: 20151019
  Transmission Date: 20160304
  Serious: No
  Sender: FDA-Public Use
  Company Number: US-ENDO PHARMACEUTICALS INC.-AMIT20150003

PATIENT
  Age: 84 Year
  Sex: Male

DRUGS (2)
  1. AMITRIPTYLINE HCL 25MG [Suspect]
     Active Substance: AMITRIPTYLINE
     Indication: INSOMNIA
     Route: 065
  2. AMITRIPTYLINE HCL 25MG [Suspect]
     Active Substance: AMITRIPTYLINE
     Indication: HEADACHE

REACTIONS (3)
  - Product taste abnormal [Unknown]
  - Product physical issue [Unknown]
  - Throat irritation [Unknown]

NARRATIVE: CASE EVENT DATE: 20141222
